FAERS Safety Report 4394150-6 (Version None)
Quarter: 2004Q3

REPORT INFORMATION
  Report Type: 
  Country: None (occurrence: None)
  Receive Date: 20040712
  Receipt Date: 20040630
  Transmission Date: 20050211
  Serious: Yes (Hospitalization)
  Sender: FDA-Public Use
  Company Number: PHEH2004US07141

PATIENT
  Age: 50 Year
  Sex: Male

DRUGS (4)
  1. ZELNORM [Suspect]
     Indication: IMPAIRED GASTRIC EMPTYING
     Dosage: 6 MG, BID
     Route: 048
     Dates: start: 20040330, end: 20040608
  2. PROTONIX [Concomitant]
     Dosage: 40 MG, BID
     Route: 048
  3. ANTIDEPRESSANTS [Concomitant]
  4. DAYPRO [Concomitant]
     Indication: ARTHRITIS
     Dosage: UNK, QD

REACTIONS (11)
  - ABDOMINAL DISTENSION [None]
  - ABDOMINAL PAIN [None]
  - BLOOD POTASSIUM DECREASED [None]
  - BOWEL SOUNDS ABNORMAL [None]
  - DIARRHOEA [None]
  - FLATULENCE [None]
  - NAUSEA [None]
  - PYREXIA [None]
  - SMALL INTESTINAL OBSTRUCTION [None]
  - VOMITING [None]
  - WEIGHT DECREASED [None]
